FAERS Safety Report 25447789 (Version 2)
Quarter: 2025Q2

REPORT INFORMATION
  Report Type: Spontaneous
  Country: CA (occurrence: CA)
  Receive Date: 20250617
  Receipt Date: 20250620
  Transmission Date: 20250717
  Serious: Yes (Other)
  Sender: PFIZER
  Company Number: CA-PFIZER INC-202500121003

PATIENT
  Age: 47 Year
  Sex: Female

DRUGS (2)
  1. ABRILADA [Suspect]
     Active Substance: ADALIMUMAB-AFZB
     Indication: Hidradenitis
     Dosage: 40 MG, WEEKLY (INDUCTION 160MG WEEK 0, 80M MG WEEK 2 THEN 40 MG EVERY WEEK)
     Route: 058
     Dates: start: 20231214
  2. ABRILADA [Suspect]
     Active Substance: ADALIMUMAB-AFZB
     Dosage: 40 MG, WEEKLY(INDUCTION 160MG WEEK 0, 80MG WEEK 2 THEN 40 MG EVERY WEEK.)
     Route: 058
     Dates: start: 2025

REACTIONS (1)
  - Vulval cancer [Unknown]
